FAERS Safety Report 10979436 (Version 2)
Quarter: 2015Q2

REPORT INFORMATION
  Report Type: Spontaneous
  Country: DE (occurrence: DE)
  Receive Date: 20150402
  Receipt Date: 20150423
  Transmission Date: 20150821
  Serious: Yes (Hospitalization, Other)
  Sender: FDA-Public Use
  Company Number: DE-PFIZER INC-2015091520

PATIENT
  Age: 44 Year
  Sex: Male
  Weight: 174 kg

DRUGS (8)
  1. HYDROXYZINE [Concomitant]
     Active Substance: HYDROXYZINE\HYDROXYZINE HYDROCHLORIDE
     Dosage: 25 MG, 3X/DAY (1-1-1)
  2. ATARAX [Concomitant]
     Active Substance: HYDROXYZINE\HYDROXYZINE HYDROCHLORIDE
     Indication: ANXIETY
     Dosage: 25 MG, 1-1-1
     Dates: start: 2013
  3. ZOLOFT [Interacting]
     Active Substance: SERTRALINE HYDROCHLORIDE
     Dosage: 250 MG, 1X/DAY (50 MG AT A DOSE OF 1-1-2-1
  4. ZOLOFT [Interacting]
     Active Substance: SERTRALINE HYDROCHLORIDE
     Dosage: 50 MG, 1X/DAY
     Dates: start: 2014
  5. ZOLOFT [Suspect]
     Active Substance: SERTRALINE HYDROCHLORIDE
     Indication: DEPRESSION
     Dosage: 150 MG, 1X/DAY (50 MG WITH CURRENT DOSE 2-1-0)
     Dates: start: 2013
  6. ATARAX [Concomitant]
     Active Substance: HYDROXYZINE\HYDROXYZINE HYDROCHLORIDE
     Indication: TENSION
  7. MIRTAZEPINE [Concomitant]
     Dosage: 15 MG, DAILY (0-0-0-1)
  8. MIRTAZEPINE [Concomitant]
     Indication: SLEEP DISORDER
     Dosage: 30 MG, 0-0-1
     Dates: start: 2013

REACTIONS (9)
  - Alcohol interaction [Recovered/Resolved]
  - Depression [Recovering/Resolving]
  - Blood alcohol increased [Recovered/Resolved]
  - Chest pain [Unknown]
  - Impulse-control disorder [Recovered/Resolved]
  - Electrocardiogram abnormal [Unknown]
  - Overdose [Recovered/Resolved]
  - Alcoholism [Unknown]
  - Road traffic accident [Recovered/Resolved]

NARRATIVE: CASE EVENT DATE: 2014
